FAERS Safety Report 6653351-4 (Version None)
Quarter: 2010Q1

REPORT INFORMATION
  Report Type: 
  Country: None (occurrence: None)
  Receive Date: 20100326
  Receipt Date: 20100315
  Transmission Date: 20100710
  Serious: Yes (Hospitalization, Other)
  Sender: FDA-Public Use
  Company Number: PHHY2010IE06320

PATIENT
  Sex: Male

DRUGS (6)
  1. CLOZARIL [Suspect]
     Indication: SCHIZOPHRENIA
     Dosage: UNK
     Dates: start: 20020704
  2. CLOZARIL [Suspect]
     Dosage: 400 MG
     Dates: start: 20100127
  3. CLOZARIL [Suspect]
     Dosage: 400 MG
     Dates: start: 20100129
  4. ARIPIPRAZOLE [Concomitant]
     Dosage: 20MG DAILY
  5. MIRTAZAPINE [Concomitant]
     Dosage: 45 MG, QHS
  6. ESCITALOPRAM [Concomitant]
     Dosage: 20MG DAILY

REACTIONS (6)
  - DELUSION [None]
  - FALL [None]
  - HUMERUS FRACTURE [None]
  - LEUKOPENIA [None]
  - SUICIDE ATTEMPT [None]
  - THINKING ABNORMAL [None]
